FAERS Safety Report 13301169 (Version 1)
Quarter: 2017Q1

REPORT INFORMATION
  Report Type: Spontaneous
  Country: US (occurrence: US)
  Receive Date: 20170306
  Receipt Date: 20170306
  Transmission Date: 20170428
  Serious: No
  Sender: FDA-Public Use
  Company Number: None

PATIENT
  Age: 40 Year
  Sex: Female
  Weight: 87.75 kg

DRUGS (1)
  1. SUMATRIPTAN TABLET, USP 50MG [Suspect]
     Active Substance: SUMATRIPTAN
     Indication: MIGRAINE
     Dosage: ?          QUANTITY:1 TABLET(S);?
     Route: 048
     Dates: start: 20170306

REACTIONS (3)
  - Oral discomfort [None]
  - Product taste abnormal [None]
  - Dysgeusia [None]

NARRATIVE: CASE EVENT DATE: 20170306
